FAERS Safety Report 9486610 (Version 1)
Quarter: 2013Q3

REPORT INFORMATION
  Report Type: Spontaneous
  Country: GB (occurrence: GB)
  Receive Date: 20130829
  Receipt Date: 20130829
  Transmission Date: 20140515
  Serious: Yes (Hospitalization)
  Sender: FDA-Public Use
  Company Number: GB-PFIZER INC-2013246441

PATIENT
  Age: 37 Year
  Sex: Female
  Weight: 62.9 kg

DRUGS (1)
  1. CABASER [Suspect]
     Indication: HYPERPROLACTINAEMIA
     Dosage: 500 UG, 2X/WEEK, ON WEDNESDAYS AND SUNDAYS
     Route: 048
     Dates: start: 201301, end: 20130814

REACTIONS (2)
  - Sinus tachycardia [Unknown]
  - Chest pain [Unknown]
